FAERS Safety Report 13402638 (Version 5)
Quarter: 2018Q4

REPORT INFORMATION
  Report Type: Report from Study
  Country: US (occurrence: US)
  Receive Date: 20170404
  Receipt Date: 20181221
  Transmission Date: 20190204
  Serious: Yes (Hospitalization)
  Sender: FDA-Public Use
  Company Number: US-ACTELION-A-US2016-146763

PATIENT
  Age: 72 Year
  Sex: Male
  Weight: 99.77 kg

DRUGS (6)
  1. VELETRI [Suspect]
     Active Substance: EPOPROSTENOL
     Indication: PULMONARY ARTERIAL HYPERTENSION
     Dosage: 22 NG/KG, PER MIN
     Route: 042
  2. VELETRI [Suspect]
     Active Substance: EPOPROSTENOL
     Dosage: 25 NG/KG, PER MIN
     Route: 042
  3. XARELTO [Concomitant]
     Active Substance: RIVAROXABAN
  4. DILTIAZEM. [Concomitant]
     Active Substance: DILTIAZEM
  5. SILDENAFIL CITRATE. [Concomitant]
     Active Substance: SILDENAFIL CITRATE
  6. VELETRI [Suspect]
     Active Substance: EPOPROSTENOL
     Dosage: 15 NG/KG, PER MIN
     Route: 042
     Dates: start: 20161121

REACTIONS (11)
  - Tremor [Unknown]
  - Asthenia [Unknown]
  - Pain in extremity [Unknown]
  - Dyspnoea exertional [Recovering/Resolving]
  - Pain [Unknown]
  - Catheter placement [Unknown]
  - Flushing [Recovered/Resolved]
  - Catheter management [Unknown]
  - Device related infection [Unknown]
  - Chills [Unknown]
  - Pain in jaw [Unknown]

NARRATIVE: CASE EVENT DATE: 20170302
